FAERS Safety Report 4480538-1 (Version None)
Quarter: 2004Q4

REPORT INFORMATION
  Report Type: 
  Country: None (occurrence: None)
  Receive Date: 20041019
  Receipt Date: 20041006
  Transmission Date: 20050328
  Serious: Yes (Other)
  Sender: FDA-Public Use
  Company Number: 2004075893

PATIENT
  Sex: Female

DRUGS (3)
  1. ZITHROMAX [Suspect]
     Indication: PHARYNGOLARYNGEAL PAIN
     Dosage: ORAL
     Route: 048
     Dates: start: 20040901, end: 20040901
  2. HEDERA HELIX (HEDERA HELIX) [Concomitant]
  3. DECONGESTANTS AND ANTIALLERGICS (DECONGESTANTS AND ANTIALLERGICS) [Concomitant]

REACTIONS (1)
  - HYPOTHERMIA [None]
